FAERS Safety Report 18642621 (Version 1)
Quarter: 2020Q4

REPORT INFORMATION
  Report Type: Spontaneous
  Country: US (occurrence: US)
  Receive Date: 20201218
  Receipt Date: 20201218
  Transmission Date: 20210114
  Serious: No
  Sender: FDA-Public Use
  Company Number: None

PATIENT
  Age: 28 Year
  Sex: Female
  Weight: 110.22 kg

DRUGS (1)
  1. MEMANTINE. [Suspect]
     Active Substance: MEMANTINE
     Indication: MIGRAINE
     Route: 048
     Dates: start: 20201208, end: 20201208

REACTIONS (1)
  - Rash [None]

NARRATIVE: CASE EVENT DATE: 20201208
